FAERS Safety Report 13987852 (Version 2)
Quarter: 2017Q4

REPORT INFORMATION
  Report Type: Spontaneous
  Country: FR (occurrence: FR)
  Receive Date: 20170919
  Receipt Date: 20171031
  Transmission Date: 20180321
  Serious: Yes (Other)
  Sender: FDA-Public Use
  Company Number: FR-MERCK KGAA-2026830

PATIENT
  Age: 68 Year
  Sex: Female

DRUGS (3)
  1. NOVOTHYROX [Suspect]
     Active Substance: LEVOTHYROXINE SODIUM
     Indication: HYPOTHYROIDISM
     Route: 048
     Dates: end: 201709
  2. RESITONE(OSYROL-LASIX)(SPIRONOLACTONE, FUROSEMIDE) [Concomitant]
     Route: 048
  3. SIMVASTATIN(SIMVASTATIN)(SIMVASTATIN) [Concomitant]
     Route: 048

REACTIONS (6)
  - Muscle spasms [Recovered/Resolved]
  - Headache [Recovered/Resolved]
  - Fatigue [Recovered/Resolved]
  - Product formulation issue [Recovered/Resolved]
  - Vertigo [Recovered/Resolved]
  - Hyperhidrosis [Recovered/Resolved]

NARRATIVE: CASE EVENT DATE: 201707
